FAERS Safety Report 6720282-0 (Version None)
Quarter: 2010Q2

REPORT INFORMATION
  Report Type: 
  Country: None (occurrence: None)
  Receive Date: 20100511
  Receipt Date: 20100429
  Transmission Date: 20101027
  Serious: Yes (Other)
  Sender: FDA-Public Use
  Company Number: US-PFIZER INC-2006052811

PATIENT
  Sex: Male
  Weight: 100 kg

DRUGS (5)
  1. XANAX [Suspect]
     Indication: ANXIETY
     Dosage: .25 MG, SPILT IN HALF EVERY  5 HOURS.
     Route: 048
     Dates: start: 19950101, end: 20030101
  2. XANAX XR [Suspect]
     Indication: ANXIETY
     Dosage: 0.5 MG, EVERY 18 HOURS
     Route: 048
     Dates: start: 20040101
  3. ALPRAZOLAM [Suspect]
     Indication: ANXIETY
     Dosage: .5 MG, EVERY 18 HOURS
  4. ALPRAZOLAM [Suspect]
     Dosage: 0.5 MG, UNK
  5. ALPRAZOLAM [Suspect]
     Indication: BRAIN NEOPLASM BENIGN

REACTIONS (8)
  - ABDOMINAL DISCOMFORT [None]
  - ABDOMINAL PAIN UPPER [None]
  - BLOOD PRESSURE INCREASED [None]
  - DRUG INEFFECTIVE [None]
  - FEELING ABNORMAL [None]
  - FLATULENCE [None]
  - GLUCOSE TOLERANCE IMPAIRED [None]
  - HYPERHIDROSIS [None]
